FAERS Safety Report 19855208 (Version 4)
Quarter: 2022Q2

REPORT INFORMATION
  Report Type: Other
  Country: CA (occurrence: None)
  Receive Date: 20210920
  Receipt Date: 20220415
  Transmission Date: 20220720
  Serious: No
  Sender: FDA-Public Use
  Company Number: CA-ROCHE-2794216

PATIENT
  Age: 42 Year
  Sex: Female

DRUGS (7)
  1. OCREVUS [Suspect]
     Active Substance: OCRELIZUMAB
     Indication: Relapsing-remitting multiple sclerosis
     Dosage: THEN 600 MG EVERY 6 MONTHS
     Route: 042
     Dates: start: 20210325
  2. OCREVUS [Suspect]
     Active Substance: OCRELIZUMAB
     Dosage: THEN 600 MG EVERY 6 MONTHS
     Route: 042
     Dates: start: 20160101
  3. OMEGA-3 FATTY ACIDS [Concomitant]
     Active Substance: OMEGA-3 FATTY ACIDS
  4. HERBALS\TURMERIC [Concomitant]
     Active Substance: HERBALS\TURMERIC
  5. MAGNESIUM [Concomitant]
     Active Substance: MAGNESIUM
  6. POLYSPORIN EYE DROPS [Concomitant]
  7. COVID-19 VACCINE [Concomitant]

REACTIONS (11)
  - Corneal abrasion [Recovered/Resolved]
  - Inflammation [Recovered/Resolved]
  - Headache [Not Recovered/Not Resolved]
  - Cervical radiculopathy [Not Recovered/Not Resolved]
  - Arthralgia [Not Recovered/Not Resolved]
  - Oral herpes [Unknown]
  - Emotional distress [Not Recovered/Not Resolved]
  - Neck pain [Not Recovered/Not Resolved]
  - Back pain [Not Recovered/Not Resolved]
  - Road traffic accident [Unknown]
  - Soft tissue injury [Unknown]

NARRATIVE: CASE EVENT DATE: 20210428
